FAERS Safety Report 6746560-7 (Version None)
Quarter: 2010Q2

REPORT INFORMATION
  Report Type: 
  Country: None (occurrence: None)
  Receive Date: 20100528
  Receipt Date: 20100512
  Transmission Date: 20101027
  Serious: No
  Sender: FDA-Public Use
  Company Number: CHPA2010US08230

PATIENT
  Sex: Female

DRUGS (1)
  1. MAALOX UNKNOWN (NCH) [Suspect]
     Indication: DYSPEPSIA
     Dosage: UNK, RARELY PRN
     Route: 048

REACTIONS (1)
  - DEATH [None]
